FAERS Safety Report 7596904-1 (Version None)
Quarter: 2011Q3

REPORT INFORMATION
  Report Type: 
  Country: None (occurrence: None)
  Receive Date: 20110708
  Receipt Date: 20110704
  Transmission Date: 20111222
  Serious: Yes (Other)
  Sender: FDA-Public Use
  Company Number: JP-PFIZER INC-2011149049

PATIENT
  Sex: Male

DRUGS (5)
  1. NORVASC [Suspect]
     Dosage: 10 MG, 1X/DAY
     Route: 048
  2. LANSOPRAZOLE [Concomitant]
     Route: 065
  3. ZYVOX [Suspect]
     Dosage: 1200 MG, 1X/DAY
     Route: 041
     Dates: start: 20110627, end: 20110628
  4. ZYVOX [Suspect]
     Dosage: 1200 MG, 1X/DAY
     Route: 048
     Dates: start: 20110629, end: 20110630
  5. ZYVOX [Suspect]
     Dosage: 600 MG, 1X/DAY
     Route: 048
     Dates: start: 20110701, end: 20110701

REACTIONS (2)
  - PANCYTOPENIA [None]
  - BONE MARROW FAILURE [None]
